FAERS Safety Report 6367604-0 (Version None)
Quarter: 2009Q3

REPORT INFORMATION
  Report Type: 
  Country: None (occurrence: None)
  Receive Date: 20090921
  Receipt Date: 20090830
  Transmission Date: 20100115
  Serious: No
  Sender: FDA-Public Use
  Company Number: US-ABBOTT-09P-163-0594049-00

PATIENT
  Sex: Female
  Weight: 88.53 kg

DRUGS (1)
  1. HUMIRA [Suspect]
     Indication: PSORIATIC ARTHROPATHY
     Dates: start: 20090728

REACTIONS (3)
  - CHEST PAIN [None]
  - HEADACHE [None]
  - NASOPHARYNGITIS [None]
